FAERS Safety Report 16598576 (Version 1)
Quarter: 2019Q3

REPORT INFORMATION
  Report Type: Report from Study
  Country: JP (occurrence: JP)
  Receive Date: 20190719
  Receipt Date: 20190719
  Transmission Date: 20191004
  Serious: Yes (Life-Threatening, Disabling)
  Sender: FDA-Public Use
  Company Number: JP-B.I. PHARMACEUTICALS,INC./RIDGEFIELD-2019-NB-001460

PATIENT
  Age: 76 Year
  Sex: Male
  Weight: 57.7 kg

DRUGS (1)
  1. PRAZAXA [Suspect]
     Active Substance: DABIGATRAN ETEXILATE MESYLATE
     Indication: ATRIAL FIBRILLATION
     Route: 048
     Dates: end: 20190325

REACTIONS (2)
  - Hydrocephalus [Recovered/Resolved with Sequelae]
  - Haemorrhage intracranial [Recovered/Resolved with Sequelae]

NARRATIVE: CASE EVENT DATE: 20190325
